FAERS Safety Report 24905604 (Version 1)
Quarter: 2025Q1

REPORT INFORMATION
  Report Type: Report from Study
  Country: US (occurrence: US)
  Receive Date: 20250130
  Receipt Date: 20250130
  Transmission Date: 20250408
  Serious: Yes (Other)
  Sender: RECORDATI
  Company Number: US-RECORDATI RARE DISEASE INC.-2025000456

PATIENT

DRUGS (17)
  1. SIGNIFOR [Suspect]
     Active Substance: PASIREOTIDE DIASPARTATE
     Indication: Goitre
     Dosage: 0.6 MG, BID
     Route: 058
  2. SIGNIFOR [Suspect]
     Active Substance: PASIREOTIDE DIASPARTATE
     Indication: Endocrine pancreatic disorder
  3. GAVISCON EXTRA STRENGTH [Concomitant]
     Active Substance: ALUMINUM HYDROXIDE\MAGNESIUM CARBONATE
     Indication: Product used for unknown indication
     Dosage: 160-105 MILLIGRAM (MG), DAILY (QPM) (ORAL TABLET)
     Route: 048
     Dates: start: 20040606
  4. SPIRONOLACTONE [Concomitant]
     Active Substance: SPIRONOLACTONE
     Indication: Product used for unknown indication
     Dosage: 25 MG, QD (QPM) (ORAL TABLET)
     Route: 048
     Dates: start: 20130101
  5. LOSARTAN POTASSIUM [Concomitant]
     Active Substance: LOSARTAN POTASSIUM
     Indication: Product used for unknown indication
     Dosage: 100 MG, QD (QPM)(ORAL TABLET)
     Route: 048
     Dates: start: 20130404
  6. MAGNESIUM [Concomitant]
     Active Substance: MAGNESIUM
     Indication: Product used for unknown indication
     Dosage: 250 MG, QD (QPM) (ORAL CAPSULE)
     Route: 048
     Dates: start: 20190505
  7. TAMSULOSIN HYDROCHLORIDE [Concomitant]
     Active Substance: TAMSULOSIN HYDROCHLORIDE
     Indication: Product used for unknown indication
     Dosage: 0.4 MG, BID (ORAL CAPSULE)
     Route: 048
     Dates: start: 20200101
  8. VITAMIN B12 [Concomitant]
     Active Substance: CYANOCOBALAMIN
     Indication: Product used for unknown indication
     Dosage: 250 MICROGRAM, QD (ORAL TABLET)
     Route: 048
     Dates: start: 20200303
  9. TROSPIUM CHLORIDE [Concomitant]
     Active Substance: TROSPIUM CHLORIDE
     Indication: Product used for unknown indication
     Dosage: 20 MG, AT NIGHT (QD) (ORAL TABLET)
     Route: 048
     Dates: start: 20201231
  10. ACARBOSE [Concomitant]
     Active Substance: ACARBOSE
     Indication: Product used for unknown indication
     Dosage: 100 MG, TID (ORAL TABLET)
     Route: 048
     Dates: start: 20210202
  11. FINASTERIDE [Concomitant]
     Active Substance: FINASTERIDE
     Indication: Product used for unknown indication
     Dosage: 5 MG, QD (ORAL TABLET)
     Route: 048
     Dates: start: 20210707
  12. CALCITRIOL [Concomitant]
     Active Substance: CALCITRIOL
     Indication: Product used for unknown indication
     Dosage: 0.25 MICROGRAM, QD (ORAL CAPSULE)
     Route: 048
     Dates: start: 20210909
  13. STOOL SOFTENER (DOCUSATE) [Concomitant]
     Active Substance: DOCUSATE
     Indication: Product used for unknown indication
     Dosage: 50 MG, BID (ORAL CAPSULE)
     Route: 048
     Dates: start: 20211001
  14. ELIQUIS [Concomitant]
     Active Substance: APIXABAN
     Indication: Product used for unknown indication
     Dosage: 5 MG, BID (ORAL TABLET)
     Route: 048
     Dates: start: 20220808
  15. ATORVASTATIN CALCIUM [Concomitant]
     Active Substance: ATORVASTATIN CALCIUM
     Indication: Product used for unknown indication
     Dosage: 10 MG, QPM (ORAL TABLET)
     Route: 048
     Dates: start: 20230202
  16. VERAPAMIL HCL [Concomitant]
     Active Substance: VERAPAMIL HYDROCHLORIDE
     Indication: Product used for unknown indication
     Dosage: 180 MG, QAM (ORAL TABLET EXTENDED RELEASE)
     Route: 048
     Dates: start: 20230608
  17. ZINC [Concomitant]
     Active Substance: ZINC
     Indication: Product used for unknown indication
     Dosage: 30 MG, BID (ORAL TABLET)
     Route: 048
     Dates: start: 20230528

REACTIONS (2)
  - Nerve injury [Unknown]
  - Renal impairment [Unknown]

NARRATIVE: CASE EVENT DATE: 20230701
